FAERS Safety Report 19379158 (Version 3)
Quarter: 2021Q3

REPORT INFORMATION
  Report Type: Spontaneous
  Country: US (occurrence: US)
  Receive Date: 20210607
  Receipt Date: 20210803
  Transmission Date: 20211014
  Serious: No
  Sender: FDA-Public Use
  Company Number: US-SA-2021SA186467

PATIENT
  Age: 29 Year
  Sex: Male

DRUGS (1)
  1. DUPIXENT [Suspect]
     Active Substance: DUPILUMAB
     Indication: DERMATITIS ATOPIC
     Dosage: 300 MG, QOW
     Route: 058
     Dates: start: 20191203

REACTIONS (8)
  - Dermatitis atopic [Unknown]
  - Condition aggravated [Unknown]
  - Skin exfoliation [Unknown]
  - Dry skin [Unknown]
  - Pruritus [Unknown]
  - Erythema [Unknown]
  - Skin burning sensation [Unknown]
  - Eczema [Unknown]

NARRATIVE: CASE EVENT DATE: 202106
